FAERS Safety Report 17650155 (Version 1)
Quarter: 2020Q2

REPORT INFORMATION
  Report Type: Spontaneous
  Country: US (occurrence: US)
  Receive Date: 20200409
  Receipt Date: 20200409
  Transmission Date: 20200713
  Serious: No
  Sender: FDA-Public Use
  Company Number: US-GLENMARK PHARMACEUTICALS-2019GMK040374

PATIENT
  Age: 19 Year
  Sex: Female
  Weight: 81.64 kg

DRUGS (1)
  1. ASHLYNA [Suspect]
     Active Substance: ETHINYL ESTRADIOL\LEVONORGESTREL
     Indication: CONTRACEPTION
     Dosage: 1 DF, OD
     Route: 048
     Dates: start: 2016

REACTIONS (2)
  - Product dose omission [Unknown]
  - Nausea [Recovered/Resolved]

NARRATIVE: CASE EVENT DATE: 20190317
